FAERS Safety Report 9316642 (Version 1)
Quarter: 2013Q2

REPORT INFORMATION
  Report Type: Spontaneous
  Country: US (occurrence: None)
  Receive Date: 20130524
  Receipt Date: 20130524
  Transmission Date: 20140414
  Serious: Yes (Other)
  Sender: FDA-Public Use
  Company Number: AUR-APL-2013-04097

PATIENT
  Age: 72 Year
  Sex: Female

DRUGS (3)
  1. VALPROATE [Suspect]
     Indication: DEPRESSION
     Dosage: (1000MG, 1D) UNKNOWN
  2. CARBIDOPA W/LEVODOPA (SINEMET) [Concomitant]
  3. ENTACAPONE (ENTACAPONE) [Concomitant]

REACTIONS (11)
  - Parkinsonism [None]
  - Fall [None]
  - Drug ineffective [None]
  - Balance disorder [None]
  - Resting tremor [None]
  - Motor dysfunction [None]
  - Gait disturbance [None]
  - Wheelchair user [None]
  - Cognitive disorder [None]
  - Nuchal rigidity [None]
  - Bradykinesia [None]
